FAERS Safety Report 18299396 (Version 1)
Quarter: 2020Q3

REPORT INFORMATION
  Report Type: Spontaneous
  Country: RU (occurrence: RU)
  Receive Date: 20200922
  Receipt Date: 20200922
  Transmission Date: 20201103
  Serious: Yes (Hospitalization, Other)
  Sender: FDA-Public Use
  Company Number: RU-VALIDUS PHARMACEUTICALS LLC-RU-2020VAL000774

PATIENT

DRUGS (1)
  1. FUROSEMIDE. [Suspect]
     Active Substance: FUROSEMIDE
     Indication: PRODUCT USED FOR UNKNOWN INDICATION
     Dosage: 1?2 TABLETS A DAY (UNCONTROLLED SELF?ADMINISTRATION)
     Route: 065

REACTIONS (14)
  - Electrocardiogram ST segment depression [Recovered/Resolved]
  - Bradyarrhythmia [Recovered/Resolved]
  - Hypokalaemia [Recovered/Resolved]
  - Diarrhoea [Recovered/Resolved]
  - Hypocalcaemia [Recovered/Resolved]
  - Electrocardiogram T wave inversion [Recovered/Resolved]
  - Intentional product misuse [Recovered/Resolved]
  - Hyponatraemia [Recovered/Resolved]
  - Asthenia [Recovered/Resolved]
  - Cardiomyopathy [Recovered/Resolved]
  - Cardiac discomfort [Recovered/Resolved]
  - Fatigue [Recovered/Resolved]
  - Electrocardiogram QT prolonged [Recovered/Resolved]
  - Muscle spasms [Recovered/Resolved]
